FAERS Safety Report 7944457-8 (Version None)
Quarter: 2011Q4

REPORT INFORMATION
  Report Type: 
  Country: None (occurrence: None)
  Receive Date: 20111122
  Receipt Date: 20110826
  Transmission Date: 20120403
  Serious: Yes (Other)
  Sender: FDA-Public Use
  Company Number: PHHY2011US45910

PATIENT
  Age: 33 Year
  Sex: Female
  Weight: 78 kg

DRUGS (2)
  1. GILENYA [Suspect]
     Indication: RELAPSING-REMITTING MULTIPLE SCLEROSIS
     Dosage: 0.5 MG, QD, ORAL
     Route: 048
     Dates: start: 20110526, end: 20110526
  2. KLONOPIN [Concomitant]

REACTIONS (3)
  - PALPITATIONS [None]
  - DYSPNOEA [None]
  - ATRIOVENTRICULAR BLOCK SECOND DEGREE [None]
